FAERS Safety Report 7955590-9 (Version None)
Quarter: 2011Q4

REPORT INFORMATION
  Report Type: 
  Country: None (occurrence: None)
  Receive Date: 20111202
  Receipt Date: 20111123
  Transmission Date: 20120403
  Serious: Yes (Hospitalization, Other)
  Sender: FDA-Public Use
  Company Number: US-ASTRAZENECA-2011SE49296

PATIENT
  Age: 74 Year
  Sex: Female
  Weight: 109.8 kg

DRUGS (19)
  1. ROPINIROLE [Concomitant]
     Dosage: 0.5 MG THREE TO FOUR TABLETS AT BEDTIME
  2. TRAMADOL HCL [Concomitant]
  3. FEXOFENADINE [Concomitant]
  4. ROPINIROLE [Concomitant]
     Indication: RESTLESS LEGS SYNDROME
     Dosage: 0.5 MG ONE AT SUPPER, THREE AT BEDTIME
  5. AMITRIPTYLINE HCL [Concomitant]
  6. MULTI-VITAMIN [Concomitant]
     Dosage: ONE DAILY
  7. VITAMIN D [Concomitant]
     Dosage: 2050 UNITS DAILY
  8. IMMUNOTHERAPY [Concomitant]
     Dosage: EVERY THREE WEEKS
  9. DICYCLOMINE [Concomitant]
  10. VITAMIN B6 [Concomitant]
  11. MUCINEX [Concomitant]
     Dosage: EXTENDED RELEASE PRN
  12. LOVAZA [Concomitant]
  13. CALCIUM [Concomitant]
  14. NEXIUM [Suspect]
     Route: 048
  15. AMITRIPTYLINE HCL [Concomitant]
  16. LOVAZA [Concomitant]
  17. GLUCOSAMINE CHONDROITIN SULFATE [Concomitant]
     Dosage: ONE DAILY
  18. FLUTICASONE PROPIONATE [Concomitant]
     Dosage: TWO SPRAYS EACH NOSTRIL DAILY
     Route: 045
  19. SINGULAIR [Concomitant]

REACTIONS (17)
  - DRUG PRESCRIBING ERROR [None]
  - FIBROSIS [None]
  - GASTROOESOPHAGEAL REFLUX DISEASE [None]
  - LACTOSE INTOLERANCE [None]
  - CALCIFICATION OF MUSCLE [None]
  - SEBORRHOEIC DERMATITIS [None]
  - OSTEOPENIA [None]
  - CHOLECYSTITIS CHRONIC [None]
  - MUCOSAL EROSION [None]
  - IRRITABLE BOWEL SYNDROME [None]
  - GRANULOMA ANNULARE [None]
  - PORCELAIN GALLBLADDER [None]
  - UMBILICAL HERNIA [None]
  - BARRETT'S OESOPHAGUS [None]
  - SLEEP APNOEA SYNDROME [None]
  - HEPATIC STEATOSIS [None]
  - RESTLESS LEGS SYNDROME [None]
